FAERS Safety Report 16139315 (Version 1)
Quarter: 2019Q2

REPORT INFORMATION
  Report Type: Spontaneous
  Country: ES (occurrence: ES)
  Receive Date: 20190401
  Receipt Date: 20190401
  Transmission Date: 20190711
  Serious: Yes (Other)
  Sender: FDA-Public Use
  Company Number: ES-LUPIN PHARMACEUTICALS INC.-2019-01803

PATIENT
  Age: 80 Year
  Sex: Male

DRUGS (7)
  1. IMATINIB MESYLATE. [Interacting]
     Active Substance: IMATINIB MESYLATE
     Dosage: 800 MILLIGRAM
     Route: 065
  2. IMATINIB MESYLATE. [Interacting]
     Active Substance: IMATINIB MESYLATE
     Dosage: 600 MILLIGRAM
     Route: 065
  3. IMATINIB MESYLATE. [Interacting]
     Active Substance: IMATINIB MESYLATE
     Dosage: 600 MILLIGRAM
     Route: 065
  4. TRIPTORELIN [Concomitant]
     Active Substance: TRIPTORELIN
     Indication: PRODUCT USED FOR UNKNOWN INDICATION
     Dosage: UNK
     Route: 065
  5. PHENYTOIN. [Interacting]
     Active Substance: PHENYTOIN
     Indication: EPILEPSY
     Dosage: UNK
     Route: 065
  6. IMATINIB MESYLATE. [Suspect]
     Active Substance: IMATINIB MESYLATE
     Indication: CHRONIC MYELOID LEUKAEMIA
     Dosage: 400 MILLIGRAM
     Route: 065
  7. IMATINIB MESYLATE. [Interacting]
     Active Substance: IMATINIB MESYLATE
     Dosage: 400 MILLIGRAM
     Route: 065

REACTIONS (5)
  - Cytopenia [Unknown]
  - Chemotherapeutic drug level below therapeutic [Unknown]
  - Therapeutic response decreased [Unknown]
  - Drug resistance [Unknown]
  - Drug interaction [Unknown]
